FAERS Safety Report 7352891-2 (Version None)
Quarter: 2011Q1

REPORT INFORMATION
  Report Type: 
  Country: None (occurrence: None)
  Receive Date: 20110315
  Receipt Date: 20110310
  Transmission Date: 20110831
  Serious: Yes (Hospitalization)
  Sender: FDA-Public Use
  Company Number: IT-ROCHE-764822

PATIENT
  Sex: Female
  Weight: 59 kg

DRUGS (1)
  1. BEVACIZUMAB [Suspect]
     Dosage: DOSE FORM: VIAL, TEMPORARILY INTERRUPTED, START DATE REPORTED AS: 23 APRIL 2011.
     Route: 042
     Dates: end: 20110215

REACTIONS (5)
  - CHEST PAIN [None]
  - TACHYCARDIA [None]
  - SUPRAVENTRICULAR TACHYCARDIA [None]
  - ELECTROCARDIOGRAM QRS COMPLEX PROLONGED [None]
  - POLYARTHRITIS [None]
